FAERS Safety Report 11243796 (Version 1)
Quarter: 2015Q3

REPORT INFORMATION
  Report Type: Spontaneous
  Country: US (occurrence: None)
  Receive Date: 20150702
  Receipt Date: 20150702
  Transmission Date: 20151125
  Serious: No
  Sender: FDA-Public Use
  Company Number: None

PATIENT
  Age: 68 Year
  Sex: Female

DRUGS (14)
  1. LISINOPRIL (PRINIVIL/ZESTRIL) [Concomitant]
  2. SIMVASTATLN (ZOCOR) [Concomitant]
  3. LIORESAL [Concomitant]
     Active Substance: BACLOFEN
  4. MODAFINIL (PRO VIGIL) [Concomitant]
  5. SYNTHROID [Concomitant]
     Active Substance: LEVOTHYROXINE SODIUM
  6. SODIUM FLUORIDE (DENTA 5000 PLUS) [Concomitant]
  7. TROSPIUM (SANCTURA XR) [Concomitant]
  8. AMPYRA [Suspect]
     Active Substance: DALFAMPRIDINE
     Indication: MULTIPLE SCLEROSIS
     Route: 048
     Dates: start: 201109
  9. INTERFERON BETA-LA (AVONEX) [Concomitant]
  10. FLUOCINONIDE (FLUEX) [Concomitant]
  11. HYDROCHLOROTHIAZIDE (ESIDRIX/HYDRODIURIL) [Concomitant]
  12. AMANLADLNE (SYMMETREL) [Concomitant]
  13. CYANOCOBALAMIN (VITAMIN B-12) [Concomitant]
  14. ASPIRIN. [Concomitant]
     Active Substance: ASPIRIN

REACTIONS (2)
  - Blood creatinine increased [None]
  - Therapy change [None]

NARRATIVE: CASE EVENT DATE: 20150616
